FAERS Safety Report 7248149-2 (Version None)
Quarter: 2011Q1

REPORT INFORMATION
  Report Type: 
  Country: None (occurrence: None)
  Receive Date: 20110127
  Receipt Date: 20100601
  Transmission Date: 20110831
  Serious: Yes (Hospitalization)
  Sender: FDA-Public Use
  Company Number: US-BAYER-200937960NA

PATIENT
  Sex: Female
  Weight: 64 kg

DRUGS (18)
  1. YAZ [Suspect]
     Indication: CONTRACEPTION
     Dates: start: 20070427, end: 20090209
  2. SYNTHROID [Concomitant]
     Indication: AUTOIMMUNE THYROIDITIS
     Dosage: 0.125 MG (DAILY DOSE), , ORAL
     Route: 048
  3. TIZANIDINE [Concomitant]
     Dosage: 4 MG (DAILY DOSE), , ORAL
     Route: 048
  4. METOPROLOL [Concomitant]
     Dosage: 50 MG (DAILY DOSE), BID,
  5. CARISOPRODOL [Concomitant]
     Dosage: 350 MG (DAILY DOSE), , ORAL
     Route: 048
  6. WARFARIN SODIUM [Concomitant]
     Dosage: 7.5 MG (DAILY DOSE), ,
  7. YAZ [Suspect]
     Indication: MENSTRUAL DISORDER
  8. YASMIN [Suspect]
     Indication: CONTRACEPTION
     Dates: start: 20090507, end: 20091021
  9. YASMIN [Suspect]
     Indication: PREMENSTRUAL SYNDROME
  10. SEROQUEL [Concomitant]
     Indication: INSOMNIA
     Dosage: 200 MG (DAILY DOSE), , ORAL
     Route: 048
  11. YASMIN [Suspect]
     Indication: MENSTRUAL DISORDER
  12. THYROID TAB [Concomitant]
     Dosage: 15 MG (DAILY DOSE), , ORAL
     Route: 048
  13. SYNTHROID [Concomitant]
     Indication: HYPOTHYROIDISM
  14. CYTOMEL [Concomitant]
     Indication: HYPOTHYROIDISM
     Dosage: 5 ?G (DAILY DOSE), , ORAL
     Route: 048
  15. LIOTHYRONINE SODIUM [Concomitant]
     Dosage: 5 ?G (DAILY DOSE), , ORAL
     Route: 048
  16. YAZ [Suspect]
     Indication: PREMENSTRUAL SYNDROME
  17. HYDROCODONE BITARTRATE AND ACETAMINOPHEN [Concomitant]
     Dosage: 500 MG (DAILY DOSE), , ORAL
     Route: 048
  18. ROZEREM [Concomitant]
     Dosage: 8 MG (DAILY DOSE), , ORAL
     Route: 048

REACTIONS (4)
  - HYPOKALAEMIA [None]
  - PULMONARY EMBOLISM [None]
  - SINUS TACHYCARDIA [None]
  - RESPIRATORY ALKALOSIS [None]
